FAERS Safety Report 7648838-1 (Version None)
Quarter: 2011Q3

REPORT INFORMATION
  Report Type: 
  Country: None (occurrence: None)
  Receive Date: 20110801
  Receipt Date: 20110722
  Transmission Date: 20111222
  Serious: Yes (Hospitalization)
  Sender: FDA-Public Use
  Company Number: PHHY2011SG68490

PATIENT
  Age: 31 Year
  Sex: Female

DRUGS (3)
  1. PREDNISOLONE [Suspect]
  2. PREDNISOLONE [Suspect]
     Indication: RASH MACULO-PAPULAR
  3. HYDROCORTISONE [Suspect]
     Indication: RASH MACULO-PAPULAR
     Route: 042

REACTIONS (7)
  - RASH [None]
  - PYREXIA [None]
  - BLISTER [None]
  - STOMATITIS [None]
  - SKIN NECROSIS [None]
  - SYSTEMIC LUPUS ERYTHEMATOSUS [None]
  - SKIN EROSION [None]
